FAERS Safety Report 7129096-3 (Version None)
Quarter: 2010Q4

REPORT INFORMATION
  Report Type: 
  Country: None (occurrence: None)
  Receive Date: 20101130
  Receipt Date: 20101119
  Transmission Date: 20110411
  Serious: Yes (Hospitalization)
  Sender: FDA-Public Use
  Company Number: BR-US-EMD SERONO, INC.-7007420

PATIENT
  Sex: Female

DRUGS (1)
  1. REBIF [Suspect]
     Indication: SECONDARY PROGRESSIVE MULTIPLE SCLEROSIS
     Route: 058
     Dates: start: 20050321, end: 20100101

REACTIONS (1)
  - ISCHAEMIC STROKE [None]
